FAERS Safety Report 8652784 (Version 2)
Quarter: 2012Q4

REPORT INFORMATION
  Report Type: 
  Country: DE (occurrence: IT)
  Receive Date: 20120706
  Receipt Date: 20120918
  Transmission Date: 20130627
  Serious: No
  Sender: FDA-Public Use
  Company Number: IT-BRISTOL-MYERS SQUIBB COMPANY-16731515

PATIENT
  Age: 52 Year
  Sex: Male

DRUGS (2)
  1. ERBITUX SOLN FOR INF [Suspect]
     Indication: COLORECTAL CANCER
     Dosage: 09May12: Last dose of Erbitux
Restat on 21May2012
     Route: 042
     Dates: start: 20120418
  2. TARGIN [Concomitant]
     Route: 048
     Dates: start: 20120509

REACTIONS (1)
  - Gastrointestinal hypomotility [Recovered/Resolved]
